FAERS Safety Report 7168218-5 (Version None)
Quarter: 2010Q4

REPORT INFORMATION
  Report Type: 
  Country: None (occurrence: None)
  Receive Date: 20101216
  Receipt Date: 20101130
  Transmission Date: 20110411
  Serious: No
  Sender: FDA-Public Use
  Company Number: US-B.I. PHARMACEUTICALS,INC./RIDGEFIELD-2010-BP-13552BP

PATIENT
  Age: 80 Year
  Sex: Male

DRUGS (10)
  1. AGGRENOX [Suspect]
     Indication: TRANSIENT ISCHAEMIC ATTACK
     Route: 048
     Dates: start: 20101117
  2. PRIMIDONE [Concomitant]
  3. LORAZEPAM [Concomitant]
     Indication: NERVOUS SYSTEM DISORDER
  4. VITAMIN D [Concomitant]
     Indication: PROPHYLAXIS
  5. ADVAIR [Concomitant]
     Indication: ASTHMA
  6. SIMVASTATIN [Concomitant]
     Indication: BLOOD CHOLESTEROL INCREASED
  7. ACETAMINOPHEN [Concomitant]
     Indication: ANALGESIC THERAPY
  8. CITALOPRAM HYDROBROMIDE [Concomitant]
     Indication: DEPRESSION
  9. ARTHROTEC [Concomitant]
     Indication: PAIN
  10. TAMLOSIN [Concomitant]
     Indication: POLLAKIURIA

REACTIONS (4)
  - ABDOMINAL DISCOMFORT [None]
  - DIARRHOEA [None]
  - HEADACHE [None]
  - PAIN IN EXTREMITY [None]
